FAERS Safety Report 19185267 (Version 2)
Quarter: 2021Q2

REPORT INFORMATION
  Report Type: Spontaneous
  Country: IT (occurrence: IT)
  Receive Date: 20210427
  Receipt Date: 20210506
  Transmission Date: 20210717
  Serious: Yes (Hospitalization)
  Sender: FDA-Public Use
  Company Number: IT-TEVA-2021-IT-1904701

PATIENT
  Age: 68 Year
  Sex: Male

DRUGS (6)
  1. LENTOKALIUM [Concomitant]
     Active Substance: POTASSIUM CHLORIDE
  2. NEURONTIN [Suspect]
     Active Substance: GABAPENTIN
     Dosage: 500MG
     Route: 048
  3. TAVOR (LORAZEPAM) [Suspect]
     Active Substance: LORAZEPAM
     Indication: PSYCHOTIC DISORDER
     Dosage: 10MG
     Route: 048
  4. ZOLOFT [Suspect]
     Active Substance: SERTRALINE HYDROCHLORIDE
     Dosage: 50MG
     Route: 048
  5. SOTALOL. [Concomitant]
     Active Substance: SOTALOL
  6. QUETIAPINE. [Suspect]
     Active Substance: QUETIAPINE
     Indication: PSYCHOTIC DISORDER
     Dosage: 300MG
     Route: 048

REACTIONS (4)
  - Dyspnoea [Recovering/Resolving]
  - Depressed level of consciousness [Recovering/Resolving]
  - Overdose [Recovering/Resolving]
  - Speech disorder [Recovering/Resolving]

NARRATIVE: CASE EVENT DATE: 20210401
